FAERS Safety Report 6764364-6 (Version None)
Quarter: 2010Q2

REPORT INFORMATION
  Report Type: 
  Country: None (occurrence: None)
  Receive Date: 20100610
  Receipt Date: 20100607
  Transmission Date: 20101027
  Serious: Yes (Hospitalization)
  Sender: FDA-Public Use
  Company Number: FR-BRISTOL-MYERS SQUIBB COMPANY-15030315

PATIENT
  Age: 72 Year
  Sex: Male

DRUGS (9)
  1. QUESTRAN [Suspect]
     Route: 048
     Dates: end: 20100224
  2. PREVISCAN [Suspect]
     Indication: EMBOLISM
     Route: 048
     Dates: start: 20091101, end: 20100224
  3. ALLOPURINOL [Suspect]
     Route: 048
     Dates: end: 20100224
  4. KENZEN [Suspect]
     Dosage: 16MG;1DF=1 SCORED TABLET
     Route: 048
     Dates: end: 20100224
  5. TORENTAL [Suspect]
     Dosage: 800MG DAILY
     Route: 048
     Dates: end: 20100224
  6. FUROSEMIDE [Concomitant]
  7. KARDEGIC [Concomitant]
  8. NEXIUM [Concomitant]
  9. FORTIMEL [Concomitant]
     Dosage: FOOD COMPLEMENT

REACTIONS (11)
  - ANAEMIA MACROCYTIC [None]
  - DRUG RASH WITH EOSINOPHILIA AND SYSTEMIC SYMPTOMS [None]
  - EOSINOPHILIA [None]
  - GENERAL PHYSICAL HEALTH DETERIORATION [None]
  - IRON DEFICIENCY [None]
  - MALNUTRITION [None]
  - NAUSEA [None]
  - PRURITUS [None]
  - RENAL FAILURE [None]
  - RENAL TUBULAR DISORDER [None]
  - WEIGHT DECREASED [None]
